FAERS Safety Report 8044541-7 (Version None)
Quarter: 2012Q1

REPORT INFORMATION
  Report Type: 
  Country: None (occurrence: None)
  Receive Date: 20120113
  Receipt Date: 20120106
  Transmission Date: 20120608
  Serious: Yes (Hospitalization)
  Sender: FDA-Public Use
  Company Number: US-B.I. PHARMACEUTICALS,INC./RIDGEFIELD-2012-BP-00382BP

PATIENT
  Age: 75 Year
  Sex: Female
  Weight: 36.74 kg

DRUGS (5)
  1. VIIBRYD [Suspect]
     Dosage: 10 MG
     Route: 048
     Dates: start: 20111027, end: 20111101
  2. LEXAPRO [Suspect]
     Dosage: 7.5 MG
     Dates: start: 20110101
  3. LEXAPRO [Suspect]
     Indication: GENERALISED ANXIETY DISORDER
     Dosage: 2.5 MG
     Route: 048
     Dates: start: 20111001
  4. LEXAPRO [Suspect]
     Dosage: 5 MG
     Route: 048
     Dates: start: 20110101, end: 20110101
  5. MIRAPEX [Suspect]
     Dates: end: 20111101

REACTIONS (3)
  - HALLUCINATION [None]
  - JOINT INJURY [None]
  - FALL [None]
